FAERS Safety Report 6646285-2 (Version None)
Quarter: 2010Q1

REPORT INFORMATION
  Report Type: 
  Country: None (occurrence: None)
  Receive Date: 20100323
  Receipt Date: 20100316
  Transmission Date: 20100710
  Serious: Yes (Death, Life-Threatening, Hospitalization)
  Sender: FDA-Public Use
  Company Number: JP-BAYER-200912978BYL

PATIENT
  Age: 72 Year
  Sex: Female
  Weight: 41 kg

DRUGS (2)
  1. NEXAVAR [Suspect]
     Indication: HEPATIC NEOPLASM MALIGNANT
     Dosage: TOTAL DAILY DOSE: 800 MG  UNIT DOSE: 200 MG
     Route: 048
     Dates: start: 20090710, end: 20090716
  2. NEXAVAR [Suspect]
     Dosage: UNIT DOSE: 200 MG
     Route: 048
     Dates: start: 20090717, end: 20090720

REACTIONS (7)
  - HAEMORRHAGIC ASCITES [None]
  - HEPATIC FAILURE [None]
  - PALMAR-PLANTAR ERYTHRODYSAESTHESIA SYNDROME [None]
  - PLATELET COUNT DECREASED [None]
  - PYREXIA [None]
  - RASH [None]
  - TUMOUR HAEMORRHAGE [None]
